FAERS Safety Report 7554707-8 (Version None)
Quarter: 2011Q2

REPORT INFORMATION
  Report Type: 
  Country: None (occurrence: None)
  Receive Date: 20110617
  Receipt Date: 20110615
  Transmission Date: 20111010
  Serious: No
  Sender: FDA-Public Use
  Company Number: CA-NAPPMUNDI-CAN-2011-0001698

PATIENT
  Sex: Female
  Weight: 40.816 kg

DRUGS (3)
  1. REMERON [Concomitant]
     Indication: PRODUCT USED FOR UNKNOWN INDICATION
     Dosage: 15 MG, HS
  2. NALOXOLNE HCL [Suspect]
     Indication: PAIN
     Dosage: 5 TABLET, BID
     Route: 048
     Dates: start: 20101001
  3. OXYCODONE HCL [Suspect]
     Indication: PAIN
     Dosage: 10 MG, TID
     Route: 048

REACTIONS (4)
  - DISORIENTATION [None]
  - COGNITIVE DISORDER [None]
  - CONSTIPATION [None]
  - ANXIETY [None]
